FAERS Safety Report 13003453 (Version 1)
Quarter: 2016Q4

REPORT INFORMATION
  Report Type: Spontaneous
  Country: US (occurrence: US)
  Receive Date: 20161206
  Receipt Date: 20161206
  Transmission Date: 20170207
  Serious: Yes (Hospitalization)
  Sender: FDA-Public Use
  Company Number: US-CELGENEUS-USA-2016118917

PATIENT
  Sex: Female

DRUGS (4)
  1. REVLIMID [Suspect]
     Active Substance: LENALIDOMIDE
     Indication: MALAISE
     Dosage: 25MG
     Route: 048
     Dates: start: 201403
  2. REVLIMID [Suspect]
     Active Substance: LENALIDOMIDE
     Dosage: 25MG
     Route: 048
     Dates: start: 20161019
  3. REVLIMID [Suspect]
     Active Substance: LENALIDOMIDE
     Indication: PLASMA CELL MYELOMA
     Dosage: 10MG
     Route: 048
     Dates: start: 201503
  4. REVLIMID [Suspect]
     Active Substance: LENALIDOMIDE
     Dosage: 25MG
     Route: 048
     Dates: start: 201608

REACTIONS (5)
  - Gastritis [Unknown]
  - Pain [Unknown]
  - Cough [Unknown]
  - Decreased appetite [Unknown]
  - Asthenia [Unknown]
